FAERS Safety Report 7117891-6 (Version None)
Quarter: 2010Q4

REPORT INFORMATION
  Report Type: 
  Country: None (occurrence: None)
  Receive Date: 20101123
  Receipt Date: 20101108
  Transmission Date: 20110411
  Serious: Yes (Other)
  Sender: FDA-Public Use
  Company Number: DE-JNJFOC-20101103667

PATIENT
  Age: 81 Year
  Sex: Male

DRUGS (11)
  1. RISPERDAL [Suspect]
     Indication: ILL-DEFINED DISORDER
     Route: 048
  2. RISPERDAL [Suspect]
     Route: 048
  3. RISPERDAL [Suspect]
     Route: 048
  4. RISPERDAL [Suspect]
     Route: 048
  5. RISPERDAL [Suspect]
     Route: 048
  6. DIPIPERON [Suspect]
     Indication: ILL-DEFINED DISORDER
     Route: 048
  7. NEURONTIN [Concomitant]
     Route: 048
  8. AKINETON [Concomitant]
     Route: 048
  9. AMITRIPTYLINE HCL [Concomitant]
     Route: 048
  10. DOXAZOSIN MESYLATE [Concomitant]
     Route: 048
  11. FINASTERID [Concomitant]
     Route: 048

REACTIONS (3)
  - DYSPNOEA [None]
  - EMBOLISM ARTERIAL [None]
  - EMPHYSEMA [None]
